FAERS Safety Report 9388234 (Version 2)
Quarter: 2013Q3

REPORT INFORMATION
  Report Type: Spontaneous
  Country: US (occurrence: None)
  Receive Date: 20130703
  Receipt Date: 20130812
  Transmission Date: 20140515
  Serious: Yes (Life-Threatening, Hospitalization)
  Sender: FDA-Public Use
  Company Number: 13-03224

PATIENT
  Sex: Female

DRUGS (1)
  1. IPRATROPIUM [Suspect]

REACTIONS (2)
  - Respiratory distress [None]
  - Loss of consciousness [None]
